FAERS Safety Report 16991791 (Version 1)
Quarter: 2019Q4

REPORT INFORMATION
  Report Type: Spontaneous
  Country: US (occurrence: US)
  Receive Date: 20190920
  Receipt Date: 20190920
  Transmission Date: 20200122
  Serious: No
  Sender: FDA-Public Use
  Company Number: None

PATIENT
  Age: 3 Year
  Sex: Female

DRUGS (1)
  1. NEUPOGEN [Suspect]
     Active Substance: FILGRASTIM
     Indication: CYCLIC NEUTROPENIA
     Dosage: ?          OTHER ROUTE:UNDER THE SKIN?
     Dates: start: 20190815

REACTIONS (6)
  - Eyelid margin crusting [None]
  - Cough [None]
  - Nasopharyngitis [None]
  - Eye discharge [None]
  - Rhinorrhoea [None]
  - Sneezing [None]

NARRATIVE: CASE EVENT DATE: 20190823
